FAERS Safety Report 11138364 (Version 5)
Quarter: 2015Q3

REPORT INFORMATION
  Report Type: Spontaneous
  Country: JP (occurrence: JP)
  Receive Date: 20150526
  Receipt Date: 20150731
  Transmission Date: 20151125
  Serious: Yes (Death, Other)
  Sender: FDA-Public Use
  Company Number: PHJP2015JP008242

PATIENT
  Age: 78 Year
  Sex: Male

DRUGS (4)
  1. TEGRETOL [Suspect]
     Active Substance: CARBAMAZEPINE
     Indication: SEIZURE
     Dosage: 100 MG, QD
     Route: 048
     Dates: start: 20140316
  2. PREDNISOLONE. [Suspect]
     Active Substance: PREDNISOLONE
     Indication: DRUG REACTION WITH EOSINOPHILIA AND SYSTEMIC SYMPTOMS
     Dosage: 60 MG, QD
     Route: 048
  3. SULFAMETHOXAZOLE AND TRIMETHOPRIM [Suspect]
     Active Substance: SULFAMETHOXAZOLE\TRIMETHOPRIM
     Indication: ANTIFUNGAL PROPHYLAXIS
     Route: 065
  4. PREDNISOLONE. [Suspect]
     Active Substance: PREDNISOLONE
     Dosage: 30 MG, UNK
     Route: 048

REACTIONS (18)
  - Haematemesis [Unknown]
  - Rash [Unknown]
  - Lip swelling [Unknown]
  - Human herpes virus 6 serology positive [Unknown]
  - Mouth ulceration [Unknown]
  - Lip erosion [Unknown]
  - Rash erythematous [Unknown]
  - Purpura [Unknown]
  - Lymphadenopathy [Unknown]
  - Pruritus [Unknown]
  - Cytomegalovirus infection [Unknown]
  - Hepatic function abnormal [Recovering/Resolving]
  - Pneumocystis jirovecii pneumonia [Fatal]
  - Generalised erythema [Unknown]
  - Respiratory failure [Fatal]
  - Gastrointestinal ulcer [Recovering/Resolving]
  - Drug reaction with eosinophilia and systemic symptoms [Unknown]
  - Pyrexia [Recovering/Resolving]

NARRATIVE: CASE EVENT DATE: 20140422
